FAERS Safety Report 9140048 (Version 1)
Quarter: 2013Q1

REPORT INFORMATION
  Report Type: Spontaneous
  Country: US (occurrence: None)
  Receive Date: 20130205
  Receipt Date: 20130205
  Transmission Date: 20140127
  Serious: Yes (Death)
  Sender: FDA-Public Use
  Company Number: DEP_00811_2013

PATIENT
  Age: 43 Year
  Sex: Male

DRUGS (5)
  1. GABAPENTIN [Suspect]
     Indication: PRODUCT USED FOR UNKNOWN INDICATION
     Dosage: DF ORAL
  2. HYDROCODONE [Suspect]
     Dosage: DF ORAL
  3. OXYCODONE [Suspect]
     Dosage: DF ORAL
  4. BUPRENORPHINE [Suspect]
     Dosage: DF ORAL
  5. ETHANOL [Suspect]
     Route: 048

REACTIONS (3)
  - Respiratory arrest [None]
  - Cardiac arrest [None]
  - Poisoning [None]
